FAERS Safety Report 8822283 (Version 2)
Quarter: 2012Q4

REPORT INFORMATION
  Report Type: 
  Country: US (occurrence: US)
  Receive Date: 20121003
  Receipt Date: 20121109
  Transmission Date: 20130627
  Serious: Yes (Death)
  Sender: FDA-Public Use
  Company Number: PHEH2012US019055

PATIENT
  Sex: Female

DRUGS (11)
  1. AFINITOR [Suspect]
     Dosage: 10 mg, every day
     Route: 048
     Dates: end: 20120622
  2. INLYTA [Concomitant]
     Dosage: UNK
     Dates: start: 20120622
  3. EFFEXOR [Concomitant]
     Dosage: 150 mg, UNK
  4. LEVOTHYROXINE [Concomitant]
     Dosage: 75 ug, UNK
  5. BUPROPION HYDROCHLORIDE [Concomitant]
     Dosage: 300 mg, UNK
  6. LISINOPRIL [Concomitant]
     Dosage: 5 mg, UNK
  7. LYRICA [Concomitant]
     Dosage: 75 mg, UNK
  8. PEPCID [Concomitant]
     Dosage: 20 mg, UNK
  9. TYLENOL [Concomitant]
     Dosage: 500 mg, UNK
  10. IMODIUM [Concomitant]
     Dosage: UNK
  11. OPIUM TINCTURE [Concomitant]
     Dosage: 1 %, UNK

REACTIONS (1)
  - Disease progression [Fatal]
